FAERS Safety Report 5261125-4 (Version None)
Quarter: 2007Q1

REPORT INFORMATION
  Report Type: 
  Country: None (occurrence: None)
  Receive Date: 20070309
  Receipt Date: 20070306
  Transmission Date: 20070707
  Serious: Yes (Hospitalization)
  Sender: FDA-Public Use
  Company Number: US-BOEHRINGER INGELHEIM PHARMACEUTICALS, INC.-2007-BP-03114BP

PATIENT
  Age: 61 Year
  Sex: Male

DRUGS (5)
  1. SPIRIVA [Suspect]
     Route: 055
     Dates: end: 20070305
  2. FLOVENT [Concomitant]
  3. FORADIL [Concomitant]
  4. LASIX [Concomitant]
  5. ALDACTONE [Concomitant]

REACTIONS (1)
  - HEPATIC FAILURE [None]
